FAERS Safety Report 17946716 (Version 2)
Quarter: 2020Q3

REPORT INFORMATION
  Report Type: Spontaneous
  Country: US (occurrence: US)
  Receive Date: 20200625
  Receipt Date: 20200729
  Transmission Date: 20201103
  Serious: No
  Sender: FDA-Public Use
  Company Number: NVSC2020US178345

PATIENT
  Sex: Female

DRUGS (4)
  1. LENVIMA [Suspect]
     Active Substance: LENVATINIB
     Indication: THYROID CANCER
     Dosage: 14 MG, QD
     Route: 048
     Dates: start: 20070309, end: 201802
  2. LENVIMA [Suspect]
     Active Substance: LENVATINIB
     Dosage: 20 MG, QD
     Route: 048
     Dates: start: 201802, end: 201804
  3. LENVIMA [Suspect]
     Active Substance: LENVATINIB
     Dosage: 10 MG, QD
     Route: 048
     Dates: start: 20180418
  4. ZOMETA [Suspect]
     Active Substance: ZOLEDRONIC ACID
     Indication: PRODUCT USED FOR UNKNOWN INDICATION
     Dosage: UNK
     Route: 065

REACTIONS (4)
  - Asthenia [Unknown]
  - Arthralgia [Unknown]
  - Dysuria [Unknown]
  - Bone pain [Unknown]
